FAERS Safety Report 8992926 (Version 3)
Quarter: 2013Q1

REPORT INFORMATION
  Report Type: Report from Study
  Country: US (occurrence: US)
  Receive Date: 20130102
  Receipt Date: 20130228
  Transmission Date: 20140127
  Serious: Yes (Other)
  Sender: FDA-Public Use
  Company Number: US-JNJFOC-20121211432

PATIENT
  Age: 44 None
  Sex: Female
  Weight: 88.45 kg

DRUGS (18)
  1. REMICADE [Suspect]
     Indication: COLITIS ULCERATIVE
     Dosage: BEGAN USING REMICADE 5-6 YEARS AGO
     Route: 042
     Dates: start: 20120831, end: 20120831
  2. REMICADE [Suspect]
     Indication: COLITIS ULCERATIVE
     Dosage: BEGAN USING REMICADE 5-6 YEARS AGO
     Route: 042
     Dates: start: 200602
  3. REMICADE [Suspect]
     Indication: CROHN^S DISEASE
     Dosage: BEGAN USING REMICADE 5-6 YEARS AGO
     Route: 042
     Dates: start: 20120831, end: 20120831
  4. REMICADE [Suspect]
     Indication: CROHN^S DISEASE
     Dosage: BEGAN USING REMICADE 5-6 YEARS AGO
     Route: 042
     Dates: start: 200602
  5. AZATHIOPRINE [Concomitant]
     Indication: CROHN^S DISEASE
     Route: 048
  6. MULTIVITAMINS [Concomitant]
     Route: 048
  7. OMEPRAZOLE [Concomitant]
     Indication: BARRETT^S OESOPHAGUS
  8. CALCIUM [Concomitant]
  9. MAGNESIUM [Concomitant]
  10. FOLIC ACID [Concomitant]
  11. B12 [Concomitant]
  12. TYLENOL [Concomitant]
     Indication: PREMEDICATION
  13. BENADRYL [Concomitant]
     Indication: PREMEDICATION
  14. SOLU-MEDROL [Concomitant]
     Indication: PREMEDICATION
  15. DIPHENHYDRAMINE [Concomitant]
     Indication: PREMEDICATION
     Route: 048
  16. METHYLPREDNISOLONE [Concomitant]
     Indication: PREMEDICATION
  17. ACETAMINOPHEN [Concomitant]
     Indication: PREMEDICATION
     Route: 048
  18. PEPCID [Concomitant]
     Indication: PREMEDICATION
     Route: 042

REACTIONS (9)
  - Hiatus hernia [Not Recovered/Not Resolved]
  - Hypersensitivity [Recovered/Resolved]
  - Pulse abnormal [Recovered/Resolved]
  - Hypotension [Recovered/Resolved]
  - Eye disorder [Recovered/Resolved]
  - Vitamin B12 deficiency [Not Recovered/Not Resolved]
  - Infusion related reaction [Recovered/Resolved]
  - Nausea [Recovered/Resolved]
  - Dizziness [Recovered/Resolved]
